FAERS Safety Report 8384706-8 (Version None)
Quarter: 2012Q2

REPORT INFORMATION
  Report Type: 
  Country: None (occurrence: None)
  Receive Date: 20120524
  Receipt Date: 20120514
  Transmission Date: 20120825
  Serious: Yes (Death)
  Sender: FDA-Public Use
  Company Number: TW-BAXTER-2012BAX006003

PATIENT
  Sex: Female

DRUGS (3)
  1. DIANEAL LOW CALCIUM WITH DEXTROSE 1.5% AND CALCIUM 2.5MEQ/L [Suspect]
     Route: 033
  2. NUTRINEAL PD4 WITH 1.1% AMINO ACID SOLUTION [Suspect]
     Route: 033
  3. DIANEAL LOW CALCIUM PERITONEA (2.5MEQ/L) L DIALYSIS SOLUTION WITH 1.5% [Suspect]
     Route: 033

REACTIONS (1)
  - DEATH [None]
